FAERS Safety Report 6707301-2 (Version None)
Quarter: 2010Q2

REPORT INFORMATION
  Report Type: 
  Country: None (occurrence: None)
  Receive Date: 20100503
  Receipt Date: 20090821
  Transmission Date: 20101027
  Serious: No
  Sender: FDA-Public Use
  Company Number: US-ASTRAZENECA-2009SE09446

PATIENT
  Sex: Female

DRUGS (1)
  1. NEXIUM [Suspect]
     Route: 065

REACTIONS (3)
  - BLOOD POTASSIUM DECREASED [None]
  - OESOPHAGEAL STENOSIS [None]
  - SWELLING [None]
